FAERS Safety Report 6583000-5 (Version None)
Quarter: 2010Q1

REPORT INFORMATION
  Report Type: 
  Country: None (occurrence: None)
  Receive Date: 20100216
  Receipt Date: 20100205
  Transmission Date: 20100710
  Serious: No
  Sender: FDA-Public Use
  Company Number: US-B.I. PHARMACEUTICALS,INC./RIDGEFIELD-2010-BP-01555PF

PATIENT
  Age: 61 Year
  Sex: Male

DRUGS (6)
  1. SPIRIVA [Suspect]
     Indication: CHRONIC OBSTRUCTIVE PULMONARY DISEASE
  2. ZESTRIL [Concomitant]
  3. PROVENTIL [Concomitant]
  4. MICARDIS [Concomitant]
  5. CHANTIX [Concomitant]
  6. LISINOPRIL [Concomitant]

REACTIONS (2)
  - RASH [None]
  - WOUND SECRETION [None]
